FAERS Safety Report 20460431 (Version 1)
Quarter: 2022Q1

REPORT INFORMATION
  Report Type: Report from Study
  Country: US (occurrence: US)
  Receive Date: 20220211
  Receipt Date: 20220211
  Transmission Date: 20220423
  Serious: Yes (Hospitalization)
  Sender: FDA-Public Use
  Company Number: US-JAZZ-2021-US-010996

PATIENT
  Age: 20 Year
  Sex: Male
  Weight: 56.3 kg

DRUGS (10)
  1. ASPARAGINASE ERWINIA CHRYSANTHEMI [Suspect]
     Active Substance: ASPARAGINASE ERWINIA CHRYSANTHEMI
     Dosage: 96 MILLIGRAM, 3XWEEKLY PER 2W COURSE
     Route: 030
     Dates: start: 20210205, end: 20210217
  2. ASPARAGINASE ERWINIA CHRYSANTHEMI [Suspect]
     Active Substance: ASPARAGINASE ERWINIA CHRYSANTHEMI
     Dosage: 3XWEEKLY PER 2W COURSE
     Route: 030
     Dates: start: 20210312, end: 20210507
  3. ASPARAGINASE ERWINIA CHRYSANTHEMI [Suspect]
     Active Substance: ASPARAGINASE ERWINIA CHRYSANTHEMI
     Dosage: 44 MILLIGRAM, 3XWEEKLY PER 2W COURSE
     Route: 030
     Dates: start: 20210607, end: 20210614
  4. EMLA [Concomitant]
     Active Substance: LIDOCAINE\PRILOCAINE
     Dosage: TOPICAL CREAM, PRN
     Route: 061
     Dates: start: 20201115
  5. ZOFRAN [Concomitant]
     Active Substance: ONDANSETRON HYDROCHLORIDE
     Dosage: 1 DOSAGE FORM (TABLET), QID
     Route: 048
     Dates: start: 20210405
  6. MIRALAX [Concomitant]
     Active Substance: POLYETHYLENE GLYCOL 3350
     Dosage: 17 GRAM BID, PRN
     Route: 048
     Dates: start: 20201115
  7. BACTRIM DS [Concomitant]
     Active Substance: SULFAMETHOXAZOLE\TRIMETHOPRIM
     Dosage: 1 DOSAGE FORM, BID ON SATURDAY + SUNDAY
     Route: 048
     Dates: start: 20201115
  8. FLEXERIL [Concomitant]
     Active Substance: CYCLOBENZAPRINE HYDROCHLORIDE
     Dosage: 1 DOSAGE FORM (TABLET), TID FOR 3 DAYS
     Dates: start: 20210606, end: 20210609
  9. MARINOL [Concomitant]
     Active Substance: DRONABINOL
     Dosage: 5 MILLIGRAM, BID
     Route: 048
     Dates: start: 20210506
  10. ROXICODONE [Concomitant]
     Active Substance: OXYCODONE HYDROCHLORIDE
     Dosage: 10 MILLIGRAM, Q6H
     Dates: start: 20201115

REACTIONS (2)
  - Nausea [Recovered/Resolved]
  - Vomiting [Recovered/Resolved]

NARRATIVE: CASE EVENT DATE: 20210614
